FAERS Safety Report 6390280-8 (Version None)
Quarter: 2009Q4

REPORT INFORMATION
  Report Type: 
  Country: None (occurrence: None)
  Receive Date: 20091003
  Receipt Date: 20090919
  Transmission Date: 20100525
  Serious: Yes (Hospitalization)
  Sender: FDA-Public Use
  Company Number: 1-20064362

PATIENT
  Sex: Female

DRUGS (1)
  1. METRONIDAZOLE [Suspect]
     Indication: CLOSTRIDIAL INFECTION
     Dosage: ORAL
     Route: 048

REACTIONS (6)
  - CLOSTRIDIUM TEST POSITIVE [None]
  - DIARRHOEA [None]
  - NAUSEA [None]
  - ORTHOSTATIC HYPOTENSION [None]
  - PNEUMONIA [None]
  - VOMITING [None]
